FAERS Safety Report 7091516-0 (Version None)
Quarter: 2010Q4

REPORT INFORMATION
  Report Type: 
  Country: None (occurrence: None)
  Receive Date: 20101109
  Receipt Date: 20101029
  Transmission Date: 20110411
  Serious: Yes (Hospitalization)
  Sender: FDA-Public Use
  Company Number: FR-PFIZER INC-2010137792

PATIENT
  Age: 89 Year
  Sex: Male

DRUGS (10)
  1. LYRICA [Suspect]
     Dosage: 150 MG, 2X/DAY
     Route: 048
  2. IXPRIM [Suspect]
     Dosage: 6 DF, 1X/DAY
     Route: 048
     Dates: end: 20100604
  3. KARDEGIC [Concomitant]
     Dosage: 75 MG, 1X/DAY
     Route: 048
  4. RIVOTRIL [Concomitant]
     Dosage: 15 DROPS,  1X/DAY
     Route: 048
  5. AVODART [Concomitant]
     Dosage: 0.5 MG, 1X/DAY
     Route: 048
  6. OGAST [Concomitant]
     Dosage: 15 MG, 1X/DAY
     Route: 048
  7. TRANSIPEG [Concomitant]
     Dosage: 2 DF, 1X/DAY
     Route: 048
  8. LEVOTHYROXINE SODIUM [Concomitant]
     Dosage: 125 UG, 1X/DAY
     Route: 048
  9. VASTAREL [Concomitant]
     Dosage: 35 MG, 2X/DAY
     Route: 048
  10. ARCALION [Concomitant]
     Dosage: 200 MG, AS NEEDED
     Route: 048

REACTIONS (2)
  - CONDITION AGGRAVATED [None]
  - WITHDRAWAL SYNDROME [None]
